FAERS Safety Report 9366571 (Version 3)
Quarter: 2013Q3

REPORT INFORMATION
  Report Type: Report from Study
  Country: US (occurrence: US)
  Receive Date: 20130625
  Receipt Date: 20130830
  Transmission Date: 20140515
  Serious: Yes (Hospitalization)
  Sender: FDA-Public Use
  Company Number: US-EISAI INC-E2007-00833-CLI-US

PATIENT
  Age: 16 Year
  Sex: Male
  Weight: 94.8 kg

DRUGS (27)
  1. E2007 (PERAMPANEL) [Suspect]
     Indication: PARTIAL SEIZURES
     Dosage: CORE STUDY-ACTIVE
     Route: 048
     Dates: start: 20110510, end: 20110919
  2. E2007 (PERAMPANEL) [Suspect]
     Dosage: OPEN LABEL EXTENSION
     Route: 048
     Dates: start: 20110920, end: 20111114
  3. E2007 (PERAMPANEL) [Suspect]
     Route: 048
     Dates: start: 20111115
  4. LAMOTRIGINE [Concomitant]
     Indication: EPILEPSY
     Route: 048
     Dates: start: 20090310, end: 20120207
  5. LAMOTRIGINE [Concomitant]
     Route: 048
     Dates: start: 20120208
  6. FOCALIN [Concomitant]
     Indication: ATTENTION DEFICIT/HYPERACTIVITY DISORDER
     Route: 048
     Dates: start: 200707, end: 20120611
  7. FOCALIN [Concomitant]
     Route: 048
     Dates: start: 20120208
  8. INTUNIV [Concomitant]
     Indication: ATTENTION DEFICIT/HYPERACTIVITY DISORDER
     Route: 048
     Dates: start: 20100402
  9. ABILIFY [Concomitant]
     Indication: AFFECTIVE DISORDER
     Route: 048
     Dates: start: 200907, end: 20110707
  10. ABILIFY [Concomitant]
     Dosage: 2 MG AM AND 5 MG PM
     Route: 048
     Dates: start: 20110708
  11. ZOLOFT [Concomitant]
     Indication: AFFECTIVE DISORDER
     Route: 048
     Dates: start: 200907, end: 20111004
  12. ZOLOFT [Concomitant]
     Route: 048
     Dates: start: 20111005
  13. OMEGA-3 FISH OIL [Concomitant]
     Indication: HYPERCHOLESTEROLAEMIA
     Dates: start: 201102
  14. MELATONIN [Concomitant]
     Indication: INSOMNIA
     Route: 048
     Dates: start: 20120104
  15. COLACE [Concomitant]
     Indication: CONSTIPATION
     Route: 048
     Dates: start: 20120429
  16. TRANXENE [Concomitant]
     Dates: start: 20120509, end: 20121017
  17. TRANXENE [Concomitant]
     Route: 062
     Dates: start: 20120612, end: 20121024
  18. POLYETHYLENE GLYCOL [Concomitant]
     Dosage: 1/2 CAPFUL
     Route: 048
     Dates: start: 2009
  19. ALBUTEROL INHALATION [Concomitant]
     Dosage: 2 PUFFS
     Route: 055
     Dates: start: 2002
  20. ACETAMINOPHEN [Concomitant]
     Dosage: 650 MG
     Route: 048
     Dates: start: 2008
  21. IBUPROFEN [Concomitant]
     Dosage: 400 MG
     Route: 048
     Dates: start: 2010
  22. BETAMETHASONE VALERATE CREAM [Concomitant]
     Route: 061
     Dates: start: 20110525, end: 20110529
  23. ACIDOPHILUS [Concomitant]
     Route: 048
     Dates: start: 20120429
  24. DAYTRANA [Concomitant]
     Route: 062
     Dates: start: 20120612, end: 20121024
  25. DAYTRANA [Concomitant]
     Route: 062
     Dates: start: 20121025
  26. CLINDAMYCIN [Concomitant]
     Dosage: 1 WIPE
     Route: 061
     Dates: start: 20121023
  27. INFLUENZA VACCINE [Concomitant]
     Dosage: 1 DOSE
     Route: 030
     Dates: start: 20121022, end: 20121022

REACTIONS (4)
  - Aggression [Recovered/Resolved]
  - Aggression [Recovered/Resolved]
  - Alanine aminotransferase increased [Recovered/Resolved]
  - Aspartate aminotransferase increased [Recovered/Resolved]
